FAERS Safety Report 8535555-9 (Version None)
Quarter: 2012Q3

REPORT INFORMATION
  Report Type: 
  Country: None (occurrence: None)
  Receive Date: 20120717
  Receipt Date: 20120717
  Transmission Date: 20120928
  Serious: Yes (Hospitalization, Disabling, Other)
  Sender: FDA-Public Use
  Company Number: None

PATIENT
  Age: 80 Year
  Sex: Male
  Weight: 78.0187 kg

DRUGS (1)
  1. CESAMET [Suspect]
     Indication: NAUSEA
     Dosage: 1 TABLET 2 TIMES DAY PO
     Route: 048
     Dates: start: 20111009, end: 20111024

REACTIONS (4)
  - ASTHENIA [None]
  - PULMONARY OEDEMA [None]
  - NAUSEA [None]
  - LUNG DISORDER [None]
